FAERS Safety Report 6333401-5 (Version None)
Quarter: 2009Q3

REPORT INFORMATION
  Report Type: 
  Country: None (occurrence: None)
  Receive Date: 20090828
  Receipt Date: 20090819
  Transmission Date: 20100115
  Serious: Yes (Death, Hospitalization)
  Sender: FDA-Public Use
  Company Number: PH-BAXTER-2009BH013142

PATIENT
  Age: 75 Year
  Sex: Male

DRUGS (1)
  1. DIANEAL [Suspect]
     Indication: PERITONEAL DIALYSIS
     Route: 033
     Dates: start: 20030601, end: 20090101

REACTIONS (3)
  - CARDIAC ARREST [None]
  - DYSPNOEA [None]
  - OEDEMA [None]
